FAERS Safety Report 4765627-6 (Version None)
Quarter: 2005Q3

REPORT INFORMATION
  Report Type: 
  Country: None (occurrence: None)
  Receive Date: 20050906
  Receipt Date: 20050818
  Transmission Date: 20060218
  Serious: Yes (Hospitalization)
  Sender: FDA-Public Use
  Company Number: EWC050845482

PATIENT
  Age: 42 Year
  Sex: Male

DRUGS (2)
  1. GEMZAR [Suspect]
     Indication: ADENOCARCINOMA
     Dosage: 1800 MG/M2/ONCE PER WEEK
     Dates: start: 20050722, end: 20050729
  2. CISPLATIN [Concomitant]

REACTIONS (4)
  - ABDOMINAL PAIN [None]
  - ACUTE ABDOMEN [None]
  - APPENDICITIS [None]
  - DIARRHOEA [None]
